FAERS Safety Report 5248734-3 (Version None)
Quarter: 2007Q1

REPORT INFORMATION
  Report Type: 
  Country: None (occurrence: None)
  Receive Date: 20070222
  Receipt Date: 20070207
  Transmission Date: 20070707
  Serious: Yes (Other)
  Sender: FDA-Public Use
  Company Number: 8021400

PATIENT
  Age: 42 Year
  Sex: Female

DRUGS (1)
  1. KEPPRA [Suspect]
     Dosage: 500 MG 2/D IV
     Route: 042
     Dates: start: 20070101, end: 20070101

REACTIONS (1)
  - PLATELET COUNT DECREASED [None]
